FAERS Safety Report 9345021 (Version 2)
Quarter: 2013Q2

REPORT INFORMATION
  Report Type: Spontaneous
  Country: US (occurrence: US)
  Receive Date: 20130612
  Receipt Date: 20130626
  Transmission Date: 20140414
  Serious: Yes (Death)
  Sender: FDA-Public Use
  Company Number: US-PFIZER INC-2013173564

PATIENT
  Age: 9 Decade
  Sex: 0

DRUGS (1)
  1. BOSULIF [Suspect]
     Dosage: UNK

REACTIONS (1)
  - Death [Fatal]
